FAERS Safety Report 7628435-4 (Version None)
Quarter: 2011Q3

REPORT INFORMATION
  Report Type: 
  Country: None (occurrence: None)
  Receive Date: 20110722
  Receipt Date: 20110708
  Transmission Date: 20111222
  Serious: Yes (Hospitalization)
  Sender: FDA-Public Use
  Company Number: KR-AMGEN-KORSP2011035733

PATIENT
  Age: 70 Year
  Sex: Female

DRUGS (13)
  1. CALCIUM ACETATE [Concomitant]
     Dosage: UNCERTAINTY
     Route: 065
  2. INDOBUFEN [Concomitant]
  3. CALCIUM ACETATE [Concomitant]
     Dosage: UNCERTAINTY
     Route: 065
  4. CALCIUM ACETATE [Concomitant]
     Dosage: UNCERTAINTY
     Route: 065
  5. ITOPRIDE HYDROCHLORIDE [Concomitant]
     Dosage: UNCERTAINTY
     Route: 065
  6. CINACALCET HYDROCHLORIDE [Suspect]
     Indication: HYPERPARATHYROIDISM
     Dosage: 25 MG, UNK
     Route: 048
     Dates: start: 20110107, end: 20110303
  7. CALCIUM ACETATE [Concomitant]
     Dosage: UNCERTAINTY
     Route: 065
  8. ACETAMINOPHEN [Concomitant]
     Dosage: UNCERTAINTY
     Route: 065
  9. CELECOXIB [Concomitant]
     Dosage: UNCERTAINTY
     Route: 065
  10. BENEXATE [Concomitant]
  11. CALCITRIOL [Concomitant]
     Dosage: UNCERTAINTY
     Route: 065
  12. NIZATIDINE [Concomitant]
     Dosage: UNCERTAINTY
     Route: 065
  13. FAMOTIDINE [Concomitant]
     Dosage: UNCERTAINTY
     Route: 065

REACTIONS (1)
  - DYSPNOEA EXERTIONAL [None]
